FAERS Safety Report 15686893 (Version 1)
Quarter: 2018Q4

REPORT INFORMATION
  Report Type: Spontaneous
  Country: US (occurrence: US)
  Receive Date: 20181204
  Receipt Date: 20181204
  Transmission Date: 20190205
  Serious: Yes (Death)
  Sender: FDA-Public Use
  Company Number: US-PORTOLA PHARMACEUTICALS, INC.-2018US000102

PATIENT

DRUGS (2)
  1. ANDEXXA [Suspect]
     Active Substance: ANDEXANET ALFA
     Indication: PROCOAGULANT THERAPY
     Dosage: UNK
     Route: 042
     Dates: start: 20181001, end: 20181001
  2. ANDEXXA [Suspect]
     Active Substance: ANDEXANET ALFA
     Indication: HAEMORRHAGE

REACTIONS (1)
  - Embolic cerebral infarction [Fatal]

NARRATIVE: CASE EVENT DATE: 20181001
